FAERS Safety Report 16103581 (Version 1)
Quarter: 2019Q1

REPORT INFORMATION
  Report Type: Spontaneous
  Country: US (occurrence: US)
  Receive Date: 20190322
  Receipt Date: 20190322
  Transmission Date: 20190418
  Serious: Yes (Other)
  Sender: FDA-Public Use
  Company Number: US-AMGEN-USASP2019042919

PATIENT
  Sex: Female

DRUGS (3)
  1. FOLASTIN [Concomitant]
     Dosage: UNK
  2. NEUPOGEN [Suspect]
     Active Substance: FILGRASTIM
     Indication: INFERTILITY
     Dosage: UNK UNK, QOD (10 UNITS FOR6 TO 7 DOSES)
     Route: 065
     Dates: start: 201811
  3. METAPURE ENTERIC [Concomitant]
     Dosage: UNK

REACTIONS (3)
  - Abortion spontaneous [Unknown]
  - Maternal exposure during pregnancy [Unknown]
  - Off label use [Unknown]

NARRATIVE: CASE EVENT DATE: 2018
